FAERS Safety Report 17453770 (Version 1)
Quarter: 2020Q1

REPORT INFORMATION
  Report Type: Report from Study
  Country: US (occurrence: US)
  Receive Date: 20200224
  Receipt Date: 20200224
  Transmission Date: 20200409
  Serious: Yes (Other)
  Sender: FDA-Public Use
  Company Number: US-GILEAD-2020-0451937

PATIENT
  Age: 63 Year
  Sex: Female

DRUGS (2)
  1. SOFOSBUVIR W/VELPATASVIR/VOXILAPREVIR [Suspect]
     Active Substance: SOFOSBUVIR\VELPATASVIR\VOXILAPREVIR
     Indication: HEPATITIS C VIRUS TEST POSITIVE
     Dosage: 1 DOSAGE FORM, QD
     Route: 048
     Dates: start: 20200110, end: 20200129
  2. SOFOSBUVIR W/VELPATASVIR [Suspect]
     Active Substance: SOFOSBUVIR\VELPATASVIR
     Indication: HEPATITIS C VIRUS TEST POSITIVE
     Dosage: 1 DOSAGE FORM, QD
     Route: 048
     Dates: start: 20190910, end: 20191024

REACTIONS (3)
  - Seizure [Unknown]
  - Product use issue [Unknown]
  - Treatment failure [Unknown]

NARRATIVE: CASE EVENT DATE: 2019
